FAERS Safety Report 6397728-3 (Version None)
Quarter: 2009Q4

REPORT INFORMATION
  Report Type: 
  Country: None (occurrence: None)
  Receive Date: 20091012
  Receipt Date: 20091006
  Transmission Date: 20100525
  Serious: Yes (Other)
  Sender: FDA-Public Use
  Company Number: US-KINGPHARMUSA00001-K200901232

PATIENT
  Age: 78 Year
  Sex: Female

DRUGS (4)
  1. ALTACE [Suspect]
     Indication: HYPERTENSION
     Dosage: 7.5 MG, UNK
  2. ALTACE [Suspect]
     Dosage: 10 MG, UNK
  3. ANTIHYPERTENSIVES [Concomitant]
  4. ERYTHROPOIETIN HUMAN [Concomitant]

REACTIONS (4)
  - CONVULSION [None]
  - HYPERTENSION [None]
  - HYPERTENSIVE ENCEPHALOPATHY [None]
  - HYPOTENSION [None]
